FAERS Safety Report 7968581-9 (Version None)
Quarter: 2011Q4

REPORT INFORMATION
  Report Type: 
  Country: None (occurrence: None)
  Receive Date: 20111209
  Receipt Date: 20111129
  Transmission Date: 20120403
  Serious: Yes (Hospitalization)
  Sender: FDA-Public Use
  Company Number: CA-JNJFOC-20111112507

PATIENT
  Age: 42 Year
  Sex: Female

DRUGS (3)
  1. REMICADE [Suspect]
     Indication: PRODUCT USED FOR UNKNOWN INDICATION
     Dosage: 19TH INFUSION
     Route: 042
  2. REMICADE [Suspect]
     Route: 042
     Dates: start: 20111123
  3. HYDROCORTISONE [Concomitant]
     Indication: PREMEDICATION
     Route: 042
     Dates: start: 20111123

REACTIONS (1)
  - INCISIONAL HERNIA [None]
